FAERS Safety Report 20566409 (Version 1)
Quarter: 2022Q1

REPORT INFORMATION
  Report Type: Spontaneous
  Country: US (occurrence: US)
  Receive Date: 20220308
  Receipt Date: 20220308
  Transmission Date: 20220423
  Serious: No
  Sender: FDA-Public Use
  Company Number: US-TAKEDA-2022TUS015247

PATIENT

DRUGS (1)
  1. VYVANSE [Suspect]
     Active Substance: LISDEXAMFETAMINE DIMESYLATE
     Indication: Product used for unknown indication
     Route: 065

REACTIONS (6)
  - Anxiety [Unknown]
  - Diarrhoea [Unknown]
  - Nausea [Unknown]
  - Initial insomnia [Unknown]
  - Irritability [Unknown]
  - Decreased appetite [Unknown]
